FAERS Safety Report 9748947 (Version 2)
Quarter: 2013Q4

REPORT INFORMATION
  Report Type: Spontaneous
  Country: US (occurrence: US)
  Receive Date: 20131212
  Receipt Date: 20131212
  Transmission Date: 20140711
  Serious: Yes (Other)
  Sender: FDA-Public Use
  Company Number: US-INCYTE CORPORATION-2013IN001025

PATIENT
  Age: 78 Year
  Sex: Male
  Weight: 57.14 kg

DRUGS (5)
  1. JAKAFI [Suspect]
     Indication: MYELOFIBROSIS
     Dosage: 20 MG, BID
     Route: 048
     Dates: start: 20130516
  2. JAKAFI [Suspect]
     Dosage: 20 MG Q AM, 10 MG Q PM
     Route: 048
     Dates: start: 2013
  3. JAKAFI [Suspect]
     Dosage: 20 MG, BID
     Route: 048
     Dates: start: 20130606
  4. ASPIRIN [Concomitant]
     Dosage: 81 MG, QD
     Route: 048
  5. FOLIC ACID [Concomitant]
     Dosage: 1 MG, QD
     Route: 048

REACTIONS (3)
  - Anaemia [Recovered/Resolved]
  - Flatulence [Unknown]
  - Dizziness [Unknown]
